FAERS Safety Report 16226617 (Version 1)
Quarter: 2019Q2

REPORT INFORMATION
  Report Type: Spontaneous
  Country: FR (occurrence: FR)
  Receive Date: 20190423
  Receipt Date: 20190423
  Transmission Date: 20190711
  Serious: Yes (Other)
  Sender: FDA-Public Use
  Company Number: FR-AUROBINDO-AUR-APL-2019-021474

PATIENT

DRUGS (6)
  1. AVASTIN [Suspect]
     Active Substance: BEVACIZUMAB
     Indication: COLORECTAL ADENOCARCINOMA
     Dosage: 245 MILLIGRAM, CYCLICAL
     Route: 042
     Dates: start: 20190221
  2. EMEND [Suspect]
     Active Substance: APREPITANT
     Indication: ANTIEMETIC SUPPORTIVE CARE
     Dosage: 1 DOSAGE FORM,125MG-80MG-80MG
     Route: 048
     Dates: start: 20190221
  3. PREDNISONE. [Suspect]
     Active Substance: PREDNISONE
     Indication: ALLERGY PROPHYLAXIS
     Dosage: 40 MILLIGRAM, CYCLICAL
     Route: 048
     Dates: start: 20190221
  4. ONDANSETRON [Suspect]
     Active Substance: ONDANSETRON
     Indication: ANTIEMETIC SUPPORTIVE CARE
     Dosage: 8 MILLIGRAM, CYCLICAL
     Route: 048
     Dates: start: 20190221
  5. ATROPINE SULPHATE [Suspect]
     Active Substance: ATROPINE SULFATE
     Indication: MUSCLE SPASMS
     Dosage: 0.25 MILLIGRAM, CYCLICAL
     Route: 058
     Dates: start: 20190221
  6. IRINOTECAN KABI [Suspect]
     Active Substance: IRINOTECAN
     Indication: COLORECTAL ADENOCARCINOMA
     Dosage: 194 MILLIGRAM, CYCLICAL
     Route: 042
     Dates: start: 20190221

REACTIONS (5)
  - Malaise [Recovered/Resolved]
  - Urticaria [Recovered/Resolved]
  - Hypertension [Recovered/Resolved]
  - Hypersensitivity [Recovered/Resolved]
  - Nausea [Recovered/Resolved]

NARRATIVE: CASE EVENT DATE: 20190221
